FAERS Safety Report 17906568 (Version 1)
Quarter: 2020Q2

REPORT INFORMATION
  Report Type: Spontaneous
  Country: US (occurrence: US)
  Receive Date: 20200616
  Receipt Date: 20200616
  Transmission Date: 20200714
  Serious: No
  Sender: FDA-Public Use
  Company Number: US-ROCHE-2540543

PATIENT
  Sex: Male
  Weight: 72.64 kg

DRUGS (1)
  1. ACTEMRA [Suspect]
     Active Substance: TOCILIZUMAB
     Indication: STILL^S DISEASE
     Route: 058
     Dates: start: 2017

REACTIONS (6)
  - Injection site pain [Unknown]
  - Needle issue [Unknown]
  - Device defective [Unknown]
  - Intentional product misuse [Unknown]
  - Off label use [Unknown]
  - Product quality issue [Unknown]
